FAERS Safety Report 12937378 (Version 1)
Quarter: 2016Q4

REPORT INFORMATION
  Report Type: Spontaneous
  Country: US (occurrence: US)
  Receive Date: 20161114
  Receipt Date: 20161114
  Transmission Date: 20170207
  Serious: Yes (Death)
  Sender: FDA-Public Use
  Company Number: US-SAGENTPRD-2016-US-000051

PATIENT
  Age: 5 Month
  Sex: 0

DRUGS (15)
  1. CYTARABINE. [Concomitant]
     Active Substance: CYTARABINE
  2. MERCAPTOPURINE. [Concomitant]
     Active Substance: MERCAPTOPURINE
  3. PREDNISONE. [Concomitant]
     Active Substance: PREDNISONE
  4. ETOPOSIDE. [Concomitant]
     Active Substance: ETOPOSIDE
  5. VINCRISTINE [Concomitant]
     Active Substance: VINCRISTINE
  6. HYDROCORTISONE. [Concomitant]
     Active Substance: HYDROCORTISONE
  7. PEGASPARGASE [Concomitant]
     Active Substance: PEGASPARGASE
  8. ASPARAGINASE [Concomitant]
     Active Substance: ASPARAGINASE
  9. DAUNORUBICIN [Concomitant]
     Active Substance: DAUNORUBICIN
  10. METHYLPREDNISOLONE. [Concomitant]
     Active Substance: METHYLPREDNISOLONE
  11. LEUCOVORIN CALCIUM FOR INJECTION [Suspect]
     Active Substance: LEUCOVORIN CALCIUM
     Dosage: UNKNOWN
  12. FILGRASTIM [Concomitant]
     Active Substance: FILGRASTIM
  13. CYCLOPHOSPHAMIDE. [Concomitant]
     Active Substance: CYCLOPHOSPHAMIDE
  14. DEXAMETHASONE. [Concomitant]
     Active Substance: DEXAMETHASONE
  15. METHOTREXATE. [Concomitant]
     Active Substance: METHOTREXATE

REACTIONS (17)
  - Thymus disorder [Fatal]
  - Venous thrombosis [None]
  - Secondary immunodeficiency [None]
  - Human herpesvirus 6 infection [None]
  - Enteritis [None]
  - Clostridium difficile colitis [None]
  - Rhinovirus infection [None]
  - Pneumonia [Fatal]
  - Oral herpes [None]
  - Viral infection [None]
  - Enterobacter infection [None]
  - Human bocavirus infection [None]
  - Viraemia [None]
  - Lymphatic disorder [Fatal]
  - Bacterial infection [None]
  - Cystitis bacterial [None]
  - Pneumatosis intestinalis [None]
